FAERS Safety Report 21842190 (Version 1)
Quarter: 2023Q1

REPORT INFORMATION
  Report Type: Report from Study
  Country: US (occurrence: US)
  Receive Date: 20230110
  Receipt Date: 20230110
  Transmission Date: 20230417
  Serious: No
  Sender: FDA-Public Use
  Company Number: US-ABBVIE-4227649

PATIENT
  Age: 29 Year
  Sex: Female

DRUGS (1)
  1. SKYRIZI [Suspect]
     Active Substance: RISANKIZUMAB-RZAA
     Indication: Psoriasis
     Dosage: WEEK 0 ?150MG/ML PEN AT WEEK 0 [11/28/22], WEEK 4, EVERY 12 WEEKS
     Route: 058
     Dates: start: 20221128

REACTIONS (2)
  - General physical health deterioration [Unknown]
  - Nasopharyngitis [Unknown]

NARRATIVE: CASE EVENT DATE: 20221201
